FAERS Safety Report 19400988 (Version 1)
Quarter: 2021Q2

REPORT INFORMATION
  Report Type: Report from Study
  Country: ZA (occurrence: ZA)
  Receive Date: 20210611
  Receipt Date: 20210611
  Transmission Date: 20210717
  Serious: Yes (Death)
  Sender: FDA-Public Use
  Company Number: ZA-ASTRAZENECA-2021A510409

PATIENT
  Age: 70 Year
  Sex: Male

DRUGS (7)
  1. FOXAIR 50/250 MCG [Concomitant]
     Dosage: 50UG/INHAL
  2. NOVORAPID [Concomitant]
     Active Substance: INSULIN ASPART
  3. PLASMOQUINE [Concomitant]
     Active Substance: CHLOROQUINE SULFATE
  4. FORXIGA [Suspect]
     Active Substance: DAPAGLIFLOZIN
     Indication: DIABETES MELLITUS
     Route: 048
  5. EUTHYROX [Concomitant]
     Active Substance: LEVOTHYROXINE SODIUM
  6. ZARTAN [Concomitant]
     Active Substance: LOSARTAN POTASSIUM
  7. AMTAS [Concomitant]

REACTIONS (1)
  - Death [Fatal]
